FAERS Safety Report 21817596 (Version 3)
Quarter: 2024Q2

REPORT INFORMATION
  Report Type: Spontaneous
  Country: US (occurrence: US)
  Receive Date: 20230104
  Receipt Date: 20240523
  Transmission Date: 20240716
  Serious: Yes (Other)
  Sender: FDA-Public Use
  Company Number: US-COOPERSURGICAL, INC.-US-2022CPS003595

PATIENT
  Sex: Female

DRUGS (1)
  1. PARAGARD T 380A [Suspect]
     Active Substance: COPPER
     Indication: Contraception
     Dosage: UNK
     Route: 015
     Dates: start: 20120601

REACTIONS (16)
  - Injury associated with device [Unknown]
  - Device breakage [Recovered/Resolved]
  - Foreign body in reproductive tract [Not Recovered/Not Resolved]
  - Complication of device removal [Not Recovered/Not Resolved]
  - Pain [Unknown]
  - Emotional distress [Not Recovered/Not Resolved]
  - Fatigue [Unknown]
  - Device material issue [Recovered/Resolved]
  - Anxiety [Not Recovered/Not Resolved]
  - Economic problem [Not Recovered/Not Resolved]
  - Abnormal uterine bleeding [Unknown]
  - Discomfort [Unknown]
  - Device use issue [Unknown]
  - Abdominal pain [Unknown]
  - Device expulsion [Recovered/Resolved]
  - Heavy menstrual bleeding [Unknown]

NARRATIVE: CASE EVENT DATE: 20120101
